FAERS Safety Report 8173252-2 (Version None)
Quarter: 2012Q1

REPORT INFORMATION
  Report Type: 
  Country: None (occurrence: None)
  Receive Date: 20120223
  Receipt Date: 20120209
  Transmission Date: 20120608
  Serious: Yes (Death, Life-Threatening, Other)
  Sender: FDA-Public Use
  Company Number: 2009AL002576

PATIENT
  Age: 68 Year
  Sex: Male
  Weight: 95.2554 kg

DRUGS (22)
  1. LIPITOR [Concomitant]
  2. DEPO-MEDROL [Concomitant]
  3. FLAGYL [Concomitant]
  4. PAPAVERINE HYDROCHLORIDE [Concomitant]
  5. PHENTOLAMINE MESYLATE [Concomitant]
  6. PHENTOLAMINE MESYLATE [Concomitant]
  7. ATACAND HCT [Concomitant]
  8. SKELAXIN [Concomitant]
  9. DURAPHEN [Concomitant]
  10. PENTANOL [Concomitant]
  11. ACETAMINOPHEN [Concomitant]
  12. ULTRACET [Concomitant]
  13. CANDESARTEN [Concomitant]
  14. AVELOX [Concomitant]
  15. XOPENIEX [Concomitant]
  16. DIGOXIN [Suspect]
     Dosage: 0.25 MG; QD; PO
     Route: 048
  17. HYDROCHLOROTHIAZIDE [Concomitant]
  18. WARFARIN SODIUM [Concomitant]
  19. METOPROLOL SUCCINATE [Concomitant]
  20. MEDROL [Concomitant]
  21. ZITHROMAX [Concomitant]
  22. LEVAQUIN [Concomitant]

REACTIONS (65)
  - AORTIC VALVE INCOMPETENCE [None]
  - COUGH [None]
  - LARYNGITIS [None]
  - OEDEMA PERIPHERAL [None]
  - SYNOVITIS [None]
  - ARTHRALGIA [None]
  - LYMPHADENOPATHY [None]
  - JOINT RANGE OF MOTION DECREASED [None]
  - EXCORIATION [None]
  - ECONOMIC PROBLEM [None]
  - TRICUSPID VALVE INCOMPETENCE [None]
  - ATRIAL FIBRILLATION [None]
  - PYREXIA [None]
  - MYALGIA [None]
  - PALPITATIONS [None]
  - PURULENT DISCHARGE [None]
  - RHINITIS [None]
  - RHONCHI [None]
  - CARDIAC ARREST [None]
  - BLOOD PRESSURE IMMEASURABLE [None]
  - NASAL OEDEMA [None]
  - INJURY [None]
  - HYPERLIPIDAEMIA [None]
  - ATRIAL PRESSURE INCREASED [None]
  - NECK PAIN [None]
  - TENOSYNOVITIS [None]
  - ACROCHORDON [None]
  - PULSE ABSENT [None]
  - UPPER-AIRWAY COUGH SYNDROME [None]
  - UNEVALUABLE EVENT [None]
  - DRY EYE [None]
  - TENONECTOMY [None]
  - DIARRHOEA [None]
  - FEELING COLD [None]
  - INTERNATIONAL NORMALISED RATIO INCREASED [None]
  - MUSCLE SPASMS [None]
  - MITRAL VALVE INCOMPETENCE [None]
  - PULMONARY HYPERTENSION [None]
  - EJECTION FRACTION DECREASED [None]
  - PAIN IN EXTREMITY [None]
  - GASTROOESOPHAGEAL REFLUX DISEASE [None]
  - COLONIC POLYP [None]
  - SINUSITIS [None]
  - HEART RATE IRREGULAR [None]
  - HAEMORRHOIDS [None]
  - LOSS OF CONSCIOUSNESS [None]
  - LEFT ATRIAL DILATATION [None]
  - CONJUNCTIVITIS ALLERGIC [None]
  - CHEST DISCOMFORT [None]
  - DIVERTICULUM [None]
  - SPINAL OSTEOARTHRITIS [None]
  - WHEEZING [None]
  - UNRESPONSIVE TO STIMULI [None]
  - CARDIAC MURMUR [None]
  - OCULAR HYPERAEMIA [None]
  - BONE PAIN [None]
  - OROPHARYNGEAL PAIN [None]
  - PHARYNGITIS [None]
  - DERMAL CYST [None]
  - MYOCARDIAL INFARCTION [None]
  - TENDONITIS [None]
  - EYE PRURITUS [None]
  - COMPARTMENT SYNDROME [None]
  - DYSPNOEA [None]
  - UPPER RESPIRATORY TRACT INFECTION [None]
